FAERS Safety Report 5977724-8 (Version None)
Quarter: 2008Q4

REPORT INFORMATION
  Report Type: 
  Country: None (occurrence: None)
  Receive Date: 20081201
  Receipt Date: 20081201
  Transmission Date: 20090506
  Serious: Yes (Other)
  Sender: FDA-Public Use
  Company Number: None

PATIENT
  Age: 56 Year
  Sex: Female
  Weight: 76.2043 kg

DRUGS (1)
  1. CIPROFLOXACIN 500MG WALGREENS [Suspect]
     Indication: URINARY TRACT INFECTION
     Dates: start: 20081017, end: 20081024

REACTIONS (8)
  - ARTHRALGIA [None]
  - ASTHENIA [None]
  - BRONCHIAL HYPERREACTIVITY [None]
  - FATIGUE [None]
  - LOWER RESPIRATORY TRACT INFECTION [None]
  - MALAISE [None]
  - MOBILITY DECREASED [None]
  - MUSCULAR WEAKNESS [None]
